FAERS Safety Report 17160373 (Version 2)
Quarter: 2020Q1

REPORT INFORMATION
  Report Type: Report from Study
  Country: US (occurrence: US)
  Receive Date: 20191216
  Receipt Date: 20200124
  Transmission Date: 20200409
  Serious: Yes (Hospitalization)
  Sender: FDA-Public Use
  Company Number: US-PFIZER INC-2019529361

PATIENT
  Age: 63 Year
  Sex: Male

DRUGS (13)
  1. METHOTREXATE SODIUM. [Suspect]
     Active Substance: METHOTREXATE SODIUM
     Indication: ACUTE LYMPHOCYTIC LEUKAEMIA
     Dosage: 50 MG/M2, CYCLIC (OVER 2HRS ON DAY 1 REGIMEN A)
     Route: 042
  2. RITUXIMAB. [Suspect]
     Active Substance: RITUXIMAB
     Dosage: 375 MG/M2 CYCLIC (ON DAY 2 AND 8 OF CYCLES 2 AND 4, REGIMEN B)
     Route: 042
  3. PEGFILGRASTIM [Suspect]
     Active Substance: PEGFILGRASTIM
     Indication: ACUTE LYMPHOCYTIC LEUKAEMIA
     Dosage: 6 MG (OR FILGRASTIM 5-10 MCG/KG DAILY) CYCLIC (ON DAY 4, REGIMEN A)
     Route: 058
  4. INOTUZUMAB OZOGAMICIN [Suspect]
     Active Substance: INOTUZUMAB OZOGAMICIN
     Indication: ACUTE LYMPHOCYTIC LEUKAEMIA
     Dosage: 0.3 MG/M2, CYCLIC (OVER 1 HOUR ON DAYS 2 AND 8 OF CYCLES 1 AND 3, REGIMEN A)
     Route: 042
     Dates: start: 20191011
  5. INOTUZUMAB OZOGAMICIN [Suspect]
     Active Substance: INOTUZUMAB OZOGAMICIN
     Dosage: 0.3 MG/M2, CYCLIC (ON DAYS 2 AND 8 OF CYCLES 2 AND 4, REGIMEN B)
     Route: 042
  6. CYTARABINE. [Suspect]
     Active Substance: CYTARABINE
     Indication: ACUTE LYMPHOCYTIC LEUKAEMIA
     Dosage: 0.5 G/M2 CYCLIC (OVER 3 HOURS TWICE A DAY X 4 DOSES ON DAYS 2 AND 3, REGIMEN B)
     Route: 042
  7. RITUXIMAB. [Suspect]
     Active Substance: RITUXIMAB
     Indication: ACUTE LYMPHOCYTIC LEUKAEMIA
     Dosage: 375 MG/M2, CYCLIC (ON DAY 2 AND DAY 8 OF CYCLES 1 AND 3, REGIMEN A)
     Route: 042
  8. MESNA. [Suspect]
     Active Substance: MESNA
     Indication: ACUTE LYMPHOCYTIC LEUKAEMIA
     Dosage: 300MG/M2 CYCLIC (DAILY OVER 24 HOURS FOR 3 DAYS ON DAYS 1-3, REGIMEN A)
     Route: 042
  9. METHOTREXATE SODIUM. [Suspect]
     Active Substance: METHOTREXATE SODIUM
     Dosage: 200 MG/M2, CYCLIC (CONTINUOUS INFUSION OVER 22 HOURS ON DAY 1, REGIMEN B)
  10. CYCLOPHOSPHAMIDE. [Suspect]
     Active Substance: CYCLOPHOSPHAMIDE
     Indication: ACUTE LYMPHOCYTIC LEUKAEMIA
     Dosage: 150 MG/M2, CYCLIC (OVER 3 HOURS TWICE A DAY ON DAYS 1-3, REGIMEN A)
     Route: 042
  11. DEXAMETHASONE. [Suspect]
     Active Substance: DEXAMETHASONE
     Indication: ACUTE LYMPHOCYTIC LEUKAEMIA
     Dosage: 20 MG, CYCLIC (DAILY FOR 4 DAYS ON DAYS 1-4 AND DAYS 11-14 REGIMEN A)
     Route: 042
  12. VINCRISTINE SULFATE. [Suspect]
     Active Substance: VINCRISTINE SULFATE
     Indication: ACUTE LYMPHOCYTIC LEUKAEMIA
     Dosage: 2 MG, CYCLIC (DAY 1 AND DAY 8, REGIMEN A)
     Route: 042
  13. PEGFILGRASTIM [Suspect]
     Active Substance: PEGFILGRASTIM
     Dosage: 6 MG (OR FILGRASTIM 5-10 MCG/KG DAILY) CYCLIC (REGIMEN B)
     Route: 058

REACTIONS (1)
  - Febrile neutropenia [Recovered/Resolved]

NARRATIVE: CASE EVENT DATE: 20191124
